FAERS Safety Report 13032411 (Version 2)
Quarter: 2016Q4

REPORT INFORMATION
  Report Type: Report from Study
  Country: US (occurrence: US)
  Receive Date: 20161215
  Receipt Date: 20161221
  Transmission Date: 20170207
  Serious: No
  Sender: FDA-Public Use
  Company Number: US-ROCHE-1861058

PATIENT
  Age: 55 Year
  Sex: Female
  Weight: 72.8 kg

DRUGS (12)
  1. ATEZOLIZUMAB [Suspect]
     Active Substance: ATEZOLIZUMAB
     Indication: NON-SMALL CELL LUNG CANCER STAGE IV
     Dosage: DOSE OF LAST ATEZOLIZUMAB ADMINISTERED, 1200 MG?DATE OF MOST RECENT DOSE, 10/NOV/2016
     Route: 042
  2. ADVIL [Concomitant]
     Active Substance: IBUPROFEN
     Indication: PAIN
     Route: 065
     Dates: start: 20160331
  3. TYLENOL [Concomitant]
     Active Substance: ACETAMINOPHEN
     Indication: PAIN
     Route: 065
     Dates: start: 20160419
  4. EMLA [Concomitant]
     Active Substance: LIDOCAINE\PRILOCAINE
     Indication: PAIN
     Route: 065
     Dates: start: 20160511
  5. PEPCID (UNITED STATES) [Concomitant]
     Route: 065
     Dates: start: 20150929
  6. PEMETREXED [Suspect]
     Active Substance: PEMETREXED
     Indication: NON-SMALL CELL LUNG CANCER STAGE IV
     Dosage: DOSE OF LAST PEMETREXED ADMINISTERED, 900 MG ?DATE OF MOST RECENT DOSE OF PEMETREXED, 13/OCT/2016 AT
     Route: 042
     Dates: start: 20160901
  7. ATIVAN [Concomitant]
     Active Substance: LORAZEPAM
     Indication: NAUSEA
  8. ATIVAN [Concomitant]
     Active Substance: LORAZEPAM
     Indication: INSOMNIA
  9. ZOFRAN [Concomitant]
     Active Substance: ONDANSETRON HYDROCHLORIDE
     Indication: NAUSEA
     Route: 065
     Dates: start: 20160331
  10. ATIVAN [Concomitant]
     Active Substance: LORAZEPAM
     Indication: ANXIETY
     Route: 065
     Dates: start: 20160424
  11. CARBOPLATIN. [Suspect]
     Active Substance: CARBOPLATIN
     Indication: NON-SMALL CELL LUNG CANCER STAGE IV
     Dosage: DOSE OF LAST CARBOPLATIN ADMINISTERED, 336.9 MG?DATE OF MOST RECENT DOSE OF CARBOPLATIN, 04/AUG/2016
     Route: 042
     Dates: start: 20160331
  12. NAB-PACLITAXEL [Suspect]
     Active Substance: PACLITAXEL
     Indication: NON-SMALL CELL LUNG CANCER STAGE IV
     Dosage: DOSE OF LAST NAB-PACLITAXEL ADMINISTERED, 91 MG?DATE OF MOST RECENT DOSE OF NAB-PACLITAXEL, 17/AUG/2
     Route: 042
     Dates: start: 20160331

REACTIONS (1)
  - Influenza like illness [Not Recovered/Not Resolved]

NARRATIVE: CASE EVENT DATE: 20161121
